FAERS Safety Report 5235183-7 (Version None)
Quarter: 2007Q1

REPORT INFORMATION
  Report Type: 
  Country: None (occurrence: None)
  Receive Date: 20070208
  Receipt Date: 20070208
  Transmission Date: 20070707
  Serious: Yes (Hospitalization)
  Sender: FDA-Public Use
  Company Number: None

PATIENT
  Age: 74 Year
  Sex: Male

DRUGS (4)
  1. AUGMENTIN '875' [Suspect]
     Indication: COUGH
     Dosage: 875/125 BID X3 DAYS
  2. AUGMENTIN '875' [Suspect]
     Indication: PHARYNGOLARYNGEAL PAIN
     Dosage: 875/125 BID X3 DAYS
  3. AUGMENTIN '875' [Suspect]
     Indication: PNEUMONIA
     Dosage: 875/125 BID X3 DAYS
  4. AUGMENTIN '875' [Suspect]
     Indication: STREPTOCOCCAL INFECTION
     Dosage: 875/125 BID X3 DAYS

REACTIONS (5)
  - BILIRUBIN CONJUGATED INCREASED [None]
  - BLOOD ALKALINE PHOSPHATASE INCREASED [None]
  - CHOLESTASIS [None]
  - JAUNDICE [None]
  - PRURITUS [None]
